FAERS Safety Report 13037691 (Version 1)
Quarter: 2016Q4

REPORT INFORMATION
  Report Type: Spontaneous
  Country: US (occurrence: US)
  Receive Date: 20161217
  Receipt Date: 20161217
  Transmission Date: 20170207
  Serious: No
  Sender: FDA-Public Use
  Company Number: US-ASTRAZENECA-2016SF30357

PATIENT
  Sex: Male
  Weight: 87.1 kg

DRUGS (2)
  1. PAINKILLERS [Concomitant]
     Active Substance: UNSPECIFIED INGREDIENT
     Indication: ARTHRITIS
  2. MOVANTIK [Suspect]
     Active Substance: NALOXEGOL OXALATE
     Indication: CONSTIPATION
     Dosage: DAILY
     Route: 048
     Dates: start: 201611

REACTIONS (3)
  - Frustration tolerance decreased [Unknown]
  - Drug effect decreased [Unknown]
  - Muscle spasms [Unknown]
